FAERS Safety Report 8553874 (Version 6)
Quarter: 2013Q2

REPORT INFORMATION
  Report Type: Report from Study
  Country: ES (occurrence: ES)
  Receive Date: 20120509
  Receipt Date: 20130529
  Transmission Date: 20140414
  Serious: Yes (Death, Life-Threatening, Hospitalization)
  Sender: FDA-Public Use
  Company Number: ES-ROCHE-1066395

PATIENT
  Age: 67 Year
  Sex: Female
  Weight: 62.2 kg

DRUGS (3)
  1. PEG-INTERFERON ALFA 2A [Suspect]
     Indication: CHRONIC HEPATITIS C
     Route: 065
     Dates: start: 20110719, end: 20120315
  2. RIBAVIRIN [Suspect]
     Indication: CHRONIC HEPATITIS C
     Route: 065
     Dates: start: 20110719, end: 20120313
  3. ALISPORIVIR [Suspect]
     Indication: CHRONIC HEPATITIS C
     Route: 048
     Dates: start: 20110719, end: 20120315

REACTIONS (4)
  - Septic shock [Fatal]
  - Cellulitis [Fatal]
  - Multi-organ failure [Fatal]
  - Renal failure [Fatal]
